FAERS Safety Report 25626025 (Version 3)
Quarter: 2025Q4

REPORT INFORMATION
  Report Type: Spontaneous
  Country: US (occurrence: US)
  Receive Date: 20250731
  Receipt Date: 20251003
  Transmission Date: 20260118
  Serious: Yes (Other)
  Sender: NOVO NORDISK
  Company Number: US-NOVOPROD-1485665

PATIENT
  Sex: Female

DRUGS (2)
  1. OZEMPIC [Suspect]
     Active Substance: SEMAGLUTIDE
     Dosage: 0.50 MG, RE STARTED
     Dates: start: 20250817
  2. OZEMPIC [Suspect]
     Active Substance: SEMAGLUTIDE
     Indication: Diabetes mellitus
     Dosage: 0.5 MG, QW

REACTIONS (5)
  - Post procedural infection [Recovered/Resolved]
  - Knee arthroplasty [Unknown]
  - Keratomileusis [Unknown]
  - Illness [Unknown]
  - Corrective lens user [Unknown]
